FAERS Safety Report 11150387 (Version 6)
Quarter: 2015Q3

REPORT INFORMATION
  Report Type: Report from Study
  Country: AU (occurrence: AU)
  Receive Date: 20150531
  Receipt Date: 20150826
  Transmission Date: 20151125
  Serious: Yes (Hospitalization, Other)
  Sender: FDA-Public Use
  Company Number: PHHY2014AU092178

PATIENT
  Age: 52 Year
  Sex: Male

DRUGS (19)
  1. CLOZARIL [Suspect]
     Active Substance: CLOZAPINE
     Dosage: 500 MG, (250 MG, BID)  PER DAY
     Route: 048
     Dates: start: 20090220
  2. SERTRALINE [Suspect]
     Active Substance: SERTRALINE HYDROCHLORIDE
     Indication: SUICIDAL IDEATION
  3. SERTRALINE [Suspect]
     Active Substance: SERTRALINE HYDROCHLORIDE
     Indication: DEPRESSION
     Dosage: 100 MG, QD
     Route: 065
     Dates: start: 20060220
  4. ASPIRIN. [Concomitant]
     Active Substance: ASPIRIN
     Indication: PRODUCT USED FOR UNKNOWN INDICATION
     Dosage: 100 MG, DAILY
     Route: 048
  5. SERTRALINE [Suspect]
     Active Substance: SERTRALINE HYDROCHLORIDE
     Indication: SUICIDE ATTEMPT
  6. AMLODIPINE [Concomitant]
     Active Substance: AMLODIPINE BESYLATE
     Indication: PRODUCT USED FOR UNKNOWN INDICATION
     Dosage: 5 MG
     Route: 048
  7. OLANZAPINE. [Suspect]
     Active Substance: OLANZAPINE
     Indication: SCHIZOPHRENIA
     Dosage: UNK
     Route: 065
     Dates: end: 20140806
  8. CLOZARIL [Suspect]
     Active Substance: CLOZAPINE
     Dosage: 600 MG, (100 MG IN MORNING AND 500 MG AT NIGHT) PER DAY
     Route: 048
     Dates: start: 20110605
  9. CLOZARIL [Suspect]
     Active Substance: CLOZAPINE
     Dosage: 650 MG, (150 MG IN MORNING AND 500 MG AT NIGHT) PER DAY
     Route: 048
     Dates: start: 20140708, end: 20140725
  10. THIAMINE. [Concomitant]
     Active Substance: THIAMINE
     Indication: PRODUCT USED FOR UNKNOWN INDICATION
     Dosage: 100 MG
     Route: 048
  11. CLOZARIL [Suspect]
     Active Substance: CLOZAPINE
     Dosage: 225 OT, UNK
     Route: 048
     Dates: start: 20150714
  12. VALPROATE SODIUM. [Suspect]
     Active Substance: VALPROATE SODIUM
     Dosage: 1500 MG, PER DAY (500 MG IN MORNING AND 1000 MG AT NIGHT))
     Route: 048
     Dates: start: 20110605, end: 20140725
  13. CANDESARTAN [Concomitant]
     Active Substance: CANDESARTAN
     Indication: PRODUCT USED FOR UNKNOWN INDICATION
     Dosage: 16 MG
     Route: 048
  14. TIOTROPIUM [Concomitant]
     Active Substance: TIOTROPIUM
     Indication: PRODUCT USED FOR UNKNOWN INDICATION
     Dosage: 18 UG
     Route: 055
  15. CLOZARIL [Suspect]
     Active Substance: CLOZAPINE
     Indication: SCHIZOAFFECTIVE DISORDER
     Dosage: 350 MG, PER DAY (150 MG IN MORNING AND 200 MG AT NIGHT) PER DAY
     Route: 048
     Dates: start: 20060412
  16. VALPROATE SODIUM. [Suspect]
     Active Substance: VALPROATE SODIUM
     Indication: AFFECTIVE DISORDER
     Dosage: 1000 MG, PER DAY (500 MG, BID)
     Route: 048
     Dates: start: 2000
  17. ESCITALOPRAM [Concomitant]
     Active Substance: ESCITALOPRAM OXALATE
     Indication: PRODUCT USED FOR UNKNOWN INDICATION
     Dosage: 10 MG, IN MORNING
     Route: 048
  18. SALBUTAMOL [Concomitant]
     Active Substance: ALBUTEROL
     Indication: PRODUCT USED FOR UNKNOWN INDICATION
     Dosage: 100 UG, (PRO INHALER)
     Route: 055
  19. CLONAZEPAM. [Concomitant]
     Active Substance: CLONAZEPAM
     Indication: PRODUCT USED FOR UNKNOWN INDICATION
     Dosage: 1 MG, (BD PM)
     Route: 065

REACTIONS (11)
  - Disease recurrence [Unknown]
  - Intentional self-injury [Unknown]
  - Mania [Unknown]
  - Antipsychotic drug level below therapeutic [Unknown]
  - Schizoaffective disorder [Unknown]
  - Suicide attempt [Unknown]
  - Psychotic disorder [Unknown]
  - Agranulocytosis [Unknown]
  - Paranoia [Unknown]
  - Suicidal ideation [Unknown]
  - Anticonvulsant drug level decreased [Unknown]

NARRATIVE: CASE EVENT DATE: 20140710
